FAERS Safety Report 5801954-9 (Version None)
Quarter: 2008Q3

REPORT INFORMATION
  Report Type: 
  Country: None (occurrence: None)
  Receive Date: 20080702
  Receipt Date: 20080619
  Transmission Date: 20090109
  Serious: Yes (Hospitalization)
  Sender: FDA-Public Use
  Company Number: 2008AL007350

PATIENT
  Age: 59 Year
  Sex: Female
  Weight: 68.0396 kg

DRUGS (8)
  1. DIGOXIN [Suspect]
     Indication: CARDIAC FAILURE CONGESTIVE
     Dosage: 0.125 MG, QD, PO
     Route: 048
     Dates: start: 19900101, end: 20080610
  2. ZOCOR [Concomitant]
  3. LOTREL [Concomitant]
  4. COREG [Concomitant]
  5. ISOSORBIDE DINITRATE [Concomitant]
  6. COLCHICINE [Concomitant]
  7. SPIRONOLACTONE [Concomitant]
  8. AMIODARONE HCL [Concomitant]

REACTIONS (10)
  - FATIGUE [None]
  - HEART RATE IRREGULAR [None]
  - HYPERTENSION [None]
  - HYPOTENSION [None]
  - MALAISE [None]
  - NAUSEA [None]
  - NEPHROLITHIASIS [None]
  - SYNCOPE [None]
  - VISION BLURRED [None]
  - VOMITING [None]
